FAERS Safety Report 20210038 (Version 1)
Quarter: 2021Q4

REPORT INFORMATION
  Report Type: Report from Study
  Country: US (occurrence: US)
  Receive Date: 20211221
  Receipt Date: 20211221
  Transmission Date: 20220304
  Serious: Yes (Death)
  Sender: FDA-Public Use
  Company Number: US-BAUSCH-BL-2020-015570

PATIENT
  Age: 60 Year
  Sex: Female
  Weight: 89.892 kg

DRUGS (1)
  1. XIFAXAN [Suspect]
     Active Substance: RIFAXIMIN
     Indication: Nonalcoholic fatty liver disease
     Dosage: 180 WITH 3 REFILLS
     Route: 048
     Dates: start: 20200429

REACTIONS (2)
  - Death [Fatal]
  - Inability to afford medication [Unknown]

NARRATIVE: CASE EVENT DATE: 20210901
